FAERS Safety Report 20800841 (Version 1)
Quarter: 2022Q2

REPORT INFORMATION
  Report Type: Spontaneous
  Country: US (occurrence: US)
  Receive Date: 20220509
  Receipt Date: 20220509
  Transmission Date: 20220721
  Serious: Yes (Death)
  Sender: FDA-Public Use
  Company Number: US-PFIZER INC-2020069911

PATIENT
  Age: 90 Year
  Sex: Female
  Weight: 54.43 kg

DRUGS (1)
  1. VFEND [Suspect]
     Active Substance: VORICONAZOLE
     Dosage: 200 MG, 2X/DAY

REACTIONS (2)
  - Death [Fatal]
  - Product dispensing error [Unknown]

NARRATIVE: CASE EVENT DATE: 20220421
